FAERS Safety Report 4268753-3 (Version None)
Quarter: 2004Q1

REPORT INFORMATION
  Report Type: 
  Country: None (occurrence: None)
  Receive Date: 20040109
  Receipt Date: 20040106
  Transmission Date: 20041129
  Serious: Yes (Hospitalization, Other)
  Sender: FDA-Public Use
  Company Number: FRWYE493406JAN04

PATIENT
  Age: 68 Year
  Sex: Male

DRUGS (6)
  1. EFFEXOR [Suspect]
     Dosage: ORAL
     Route: 048
     Dates: start: 20030102, end: 20030527
  2. NOLVADEX [Concomitant]
  3. PREVISCAN (FLUINDIONE) [Concomitant]
  4. XANAX [Concomitant]
  5. OMIX (TAMSULOSIN HYDROCHLORIDE) [Concomitant]
  6. DIGOXIN [Concomitant]

REACTIONS (3)
  - LICHEN PLANUS [None]
  - PIGMENTATION DISORDER [None]
  - RASH MACULO-PAPULAR [None]
